FAERS Safety Report 4658286-4 (Version None)
Quarter: 2005Q2

REPORT INFORMATION
  Report Type: 
  Country: None (occurrence: None)
  Receive Date: 20050510
  Receipt Date: 20050510
  Transmission Date: 20051028
  Serious: Yes (Hospitalization)
  Sender: FDA-Public Use
  Company Number: None

PATIENT
  Age: 52 Year
  Sex: Male

DRUGS (1)
  1. EFAVIRENZ [Suspect]
     Indication: HIV INFECTION
     Dosage: 600MG QD   ORAL
     Route: 048
     Dates: start: 20040826, end: 20040905

REACTIONS (2)
  - CHILLS [None]
  - PRURITUS GENERALISED [None]
